FAERS Safety Report 15778173 (Version 2)
Quarter: 2019Q1

REPORT INFORMATION
  Report Type: Spontaneous
  Country: US (occurrence: US)
  Receive Date: 20181231
  Receipt Date: 20190130
  Transmission Date: 20190417
  Serious: No
  Sender: FDA-Public Use
  Company Number: US-BAYER-2018-239296

PATIENT
  Age: 26 Year
  Sex: Female

DRUGS (1)
  1. SKYLA [Suspect]
     Active Substance: LEVONORGESTREL
     Indication: CONTRACEPTION
     Dosage: 14 MG/24HR, CONT
     Route: 015
     Dates: start: 20181213, end: 20181218

REACTIONS (2)
  - Device expulsion [Recovered/Resolved]
  - Device issue [None]

NARRATIVE: CASE EVENT DATE: 20181218
